FAERS Safety Report 13981684 (Version 1)
Quarter: 2017Q3

REPORT INFORMATION
  Report Type: Spontaneous
  Country: US (occurrence: None)
  Receive Date: 20170915
  Receipt Date: 20170915
  Transmission Date: 20171128
  Serious: Yes (Other)
  Sender: FDA-Public Use
  Company Number: None

PATIENT
  Age: 64 Year
  Sex: Female
  Weight: 65.77 kg

DRUGS (2)
  1. PROHANCE [Suspect]
     Active Substance: GADOTERIDOL
     Indication: HYPOAESTHESIA
     Route: 042
     Dates: start: 20170915, end: 20170915
  2. PROHANCE [Suspect]
     Active Substance: GADOTERIDOL
     Indication: PARAESTHESIA
     Route: 042
     Dates: start: 20170915, end: 20170915

REACTIONS (1)
  - Contrast media allergy [None]

NARRATIVE: CASE EVENT DATE: 20170915
